FAERS Safety Report 4689354-9 (Version None)
Quarter: 2005Q2

REPORT INFORMATION
  Report Type: 
  Country: None (occurrence: None)
  Receive Date: 20050608
  Receipt Date: 20050420
  Transmission Date: 20051028
  Serious: No
  Sender: FDA-Public Use
  Company Number: 2005-BP-06487BP

PATIENT
  Age: 74 Year
  Sex: Male

DRUGS (11)
  1. SPIRIVA [Suspect]
     Indication: EMPHYSEMA
     Dosage: SEE IMAGE
     Route: 055
     Dates: start: 20041202, end: 20041207
  2. SPIRIVA [Suspect]
     Indication: EMPHYSEMA
     Dosage: SEE IMAGE
     Route: 055
     Dates: start: 20050105, end: 20050312
  3. SPIRIVA [Suspect]
     Indication: EMPHYSEMA
     Dosage: SEE IMAGE
     Route: 055
     Dates: start: 20050328, end: 20050401
  4. THEOPHYLLINE [Concomitant]
  5. ZOCOR [Concomitant]
  6. GLUCOPHAGE [Concomitant]
  7. ALTACE [Concomitant]
  8. ALBUTEROL [Concomitant]
  9. FOLTX (TRIOBE) [Concomitant]
  10. HYDROCHLOROTHIAZIDE [Concomitant]
  11. ADVAIR DISKUS (SERETIDE MITE) [Concomitant]

REACTIONS (3)
  - CANDIDIASIS [None]
  - COUGH [None]
  - GASTRIC ULCER [None]
